FAERS Safety Report 9356231 (Version 1)
Quarter: 2013Q2

REPORT INFORMATION
  Report Type: Spontaneous
  Country: SE (occurrence: None)
  Receive Date: 20130614
  Receipt Date: 20130614
  Transmission Date: 20140414
  Serious: Yes (Other)
  Sender: FDA-Public Use
  Company Number: SE-20130004

PATIENT
  Age: 35 Year
  Sex: Female

DRUGS (2)
  1. DOTAREM [Suspect]
     Indication: NUCLEAR MAGNETIC RESONANCE IMAGING
     Dosage: (NOT OTHERWISE SPECIFIED)
     Route: 042
     Dates: start: 20130528, end: 20130528
  2. CERAZETT (DESOGESTREL) [Concomitant]
     Indication: NUCLEAR MAGNETIC RESONANCE IMAGING

REACTIONS (5)
  - Nausea [None]
  - Chills [None]
  - Decreased appetite [None]
  - Abdominal pain [None]
  - Back pain [None]
